FAERS Safety Report 9941053 (Version 1)
Quarter: 2014Q1

REPORT INFORMATION
  Report Type: Report from Study
  Country: US (occurrence: US)
  Receive Date: 20140303
  Receipt Date: 20140303
  Transmission Date: 20141002
  Serious: No
  Sender: FDA-Public Use
  Company Number: US-ABBVIE-13P-163-1042049-00

PATIENT
  Age: 22 Year
  Sex: Male
  Weight: 72.64 kg

DRUGS (10)
  1. HUMIRA [Suspect]
     Indication: SEBORRHOEIC DERMATITIS
     Route: 058
     Dates: start: 20121224
  2. HUMIRA [Suspect]
     Indication: GASTROENTERITIS EOSINOPHILIC
  3. HUMIRA [Suspect]
     Indication: HIDRADENITIS
  4. ENTOCORT [Concomitant]
     Indication: GASTROENTERITIS
  5. WELLBUTRIN XL [Concomitant]
     Indication: DEPRESSION
  6. HYDROXYZINE [Concomitant]
     Indication: PRURITUS
  7. HYDROXYZINE [Concomitant]
     Indication: INSOMNIA
  8. HYDROCORTISONE IODOQUINOL [Concomitant]
     Indication: HIDRADENITIS
  9. TRIAMCINOLONE ACETONIDE [Concomitant]
     Indication: HIDRADENITIS
  10. DOVONEX [Concomitant]
     Indication: HIDRADENITIS

REACTIONS (1)
  - Off label use [Not Recovered/Not Resolved]
